FAERS Safety Report 7396804-6 (Version None)
Quarter: 2011Q1

REPORT INFORMATION
  Report Type: 
  Country: None (occurrence: None)
  Receive Date: 20110328
  Receipt Date: 20110310
  Transmission Date: 20110831
  Serious: Yes (Hospitalization, Other)
  Sender: FDA-Public Use
  Company Number: 1000019323

PATIENT
  Age: 94 Year
  Sex: Female

DRUGS (12)
  1. CEFUROXIME [Suspect]
     Dosage: 3000 MG (1500 MG, 2 IN 1 D), INTRAVENOUS (NOT OTHERWISE SPECIFIED)
     Route: 042
     Dates: end: 20101220
  2. TEMGESIC (BUPRENORPHINE) (TABLETS) (BUPRENORPHINE) [Concomitant]
  3. TORASEMID (TORASEMIDE) (TABLETS) [Suspect]
     Dosage: 25 MG (25 MG,1 IN 1 D)
     Dates: end: 20101220
  4. TORASEMID (TORASEMIDE) (TABLETS) [Suspect]
     Dosage: 25 MG (25 MG,1 IN 1 D)
     Dates: start: 20101221
  5. EUTHYROX N (LEVOTHYROXINE SODIUM) (TABLETS) (LEVOTHYROXINE SODIUM) [Concomitant]
  6. MEMANTINE [Suspect]
     Dosage: 10 MG (10 MG, 1 IN 1 D), ORAL
     Route: 048
     Dates: start: 20101227, end: 20110125
  7. DAFALGAN (PARACETAMOL) (TABLETS) (PARACETAMOL) [Concomitant]
  8. LASIX [Concomitant]
  9. FUROSEMIDE (FUROSEMIDE) (TABLETS) (FUROSEMIDE) [Concomitant]
  10. ASPIRIN CARDIO (ACETYLSALICYLIC ACID) (TABLETS) (ACETYLSALICYLIC ACID) [Concomitant]
  11. CALCIPARINE [Concomitant]
  12. MEMANTINE [Suspect]
     Dosage: 20 MG (10 MG, 2 IN 1 D), ORAL
     Route: 048
     Dates: end: 20101226

REACTIONS (5)
  - RENAL FAILURE ACUTE [None]
  - RASH ERYTHEMATOUS [None]
  - FEMORAL NECK FRACTURE [None]
  - DERMATITIS ALLERGIC [None]
  - DRUG PRESCRIBING ERROR [None]
